FAERS Safety Report 5630622-1 (Version None)
Quarter: 2008Q1

REPORT INFORMATION
  Report Type: 
  Country: None (occurrence: None)
  Receive Date: 20080219
  Receipt Date: 20080219
  Transmission Date: 20080703
  Serious: Yes (Life-Threatening, Hospitalization)
  Sender: FDA-Public Use
  Company Number: None

PATIENT
  Sex: Female
  Weight: 90.7194 kg

DRUGS (1)
  1. HEPARIN [Suspect]
     Indication: SURGERY
     Dates: start: 20080124, end: 20080126

REACTIONS (2)
  - CEREBROVASCULAR ACCIDENT [None]
  - POST PROCEDURAL COMPLICATION [None]
